FAERS Safety Report 9912168 (Version 2)
Quarter: 2014Q1

REPORT INFORMATION
  Report Type: Spontaneous
  Country: US (occurrence: US)
  Receive Date: 20140220
  Receipt Date: 20140220
  Transmission Date: 20141002
  Serious: Yes (Disabling)
  Sender: FDA-Public Use
  Company Number: US-ROCHE-1341700

PATIENT
  Sex: Female

DRUGS (6)
  1. AVASTIN [Suspect]
     Indication: MACULAR DEGENERATION
     Dosage: 1- 4 TO 6 WEEKS
     Route: 050
     Dates: start: 20130801
  2. ATENOLOL [Concomitant]
     Indication: ANGINA PECTORIS
     Route: 048
     Dates: start: 20130218
  3. ATENOLOL [Concomitant]
     Indication: HYPERTENSION
  4. AMITRIPTYLINE [Concomitant]
     Route: 048
     Dates: start: 20130218
  5. AMLODIPINE [Concomitant]
     Indication: HYPERTENSION
     Route: 048
     Dates: start: 20130218
  6. VITAMIN A [Concomitant]

REACTIONS (2)
  - Eczema [Not Recovered/Not Resolved]
  - Dermatitis exfoliative [Unknown]
